FAERS Safety Report 15848731 (Version 3)
Quarter: 2019Q1

REPORT INFORMATION
  Report Type: Report from Study
  Country: CA (occurrence: CA)
  Receive Date: 20190121
  Receipt Date: 20190201
  Transmission Date: 20190417
  Serious: Yes (Other)
  Sender: FDA-Public Use
  Company Number: CA-JNJFOC-20190114557

PATIENT
  Age: 17 Year
  Sex: Female
  Weight: 62 kg

DRUGS (2)
  1. REMICADE [Suspect]
     Active Substance: INFLIXIMAB
     Indication: CROHN^S DISEASE
     Route: 042
     Dates: start: 20181105
  2. REMICADE [Suspect]
     Active Substance: INFLIXIMAB
     Indication: CROHN^S DISEASE
     Dosage: STRENGTH = 100 MG
     Route: 042
     Dates: start: 20181022

REACTIONS (3)
  - Crohn^s disease [Not Recovered/Not Resolved]
  - Off label use [Unknown]
  - Product use issue [Unknown]

NARRATIVE: CASE EVENT DATE: 20181105
